FAERS Safety Report 14078960 (Version 2)
Quarter: 2017Q4

REPORT INFORMATION
  Report Type: Spontaneous
  Country: US (occurrence: US)
  Receive Date: 20171012
  Receipt Date: 20171114
  Transmission Date: 20180321
  Serious: Yes (Life-Threatening, Hospitalization, Other)
  Sender: FDA-Public Use
  Company Number: US-MYLANLABS-2017M1022876

PATIENT
  Age: 77 Year
  Sex: Male
  Weight: 117 kg

DRUGS (1)
  1. METOPROLOL TARTRATE TABLETS USP [Suspect]
     Active Substance: METOPROLOL TARTRATE
     Indication: HYPERTENSION
     Dosage: 25 MG, BID
     Dates: end: 201611

REACTIONS (8)
  - Meningitis viral [Unknown]
  - Cardiac disorder [Unknown]
  - Pulmonary hypertension [Unknown]
  - Herpes zoster [Unknown]
  - Cardiac failure congestive [Unknown]
  - Lung disorder [Unknown]
  - Tympanic membrane perforation [Unknown]
  - Hypotension [Unknown]

NARRATIVE: CASE EVENT DATE: 201506
